FAERS Safety Report 16598298 (Version 1)
Quarter: 2019Q3

REPORT INFORMATION
  Report Type: Spontaneous
  Country: US (occurrence: US)
  Receive Date: 20190606
  Receipt Date: 20190606
  Transmission Date: 20191004
  Serious: Yes (Death)
  Sender: FDA-Public Use
  Company Number: None

PATIENT
  Age: 83 Year

DRUGS (10)
  1. OMEPRAZOLE. [Concomitant]
     Active Substance: OMEPRAZOLE
  2. FUROSEMIDE. [Concomitant]
     Active Substance: FUROSEMIDE
  3. DILTIAZEM. [Concomitant]
     Active Substance: DILTIAZEM
  4. CARTIA [Concomitant]
  5. ESBRIET [Suspect]
     Active Substance: PIRFENIDONE
     Indication: PRODUCT USED FOR UNKNOWN INDICATION
     Route: 048
     Dates: start: 20170324, end: 20190601
  6. ATORVASTATIN [Concomitant]
     Active Substance: ATORVASTATIN
  7. ELIQUIS [Concomitant]
     Active Substance: APIXABAN
  8. PROAIR HFA [Concomitant]
     Active Substance: ALBUTEROL SULFATE
  9. TAMAULCAIN [Concomitant]
  10. LABETALOL [Concomitant]
     Active Substance: LABETALOL\LABETALOL HYDROCHLORIDE

REACTIONS (1)
  - Death [None]

NARRATIVE: CASE EVENT DATE: 20190601
